FAERS Safety Report 5851528-9 (Version None)
Quarter: 2008Q3

REPORT INFORMATION
  Report Type: 
  Country: None (occurrence: None)
  Receive Date: 20080820
  Receipt Date: 20080808
  Transmission Date: 20090109
  Serious: Yes (Other)
  Sender: FDA-Public Use
  Company Number: US-ELI_LILLY_AND_COMPANY-US200808001686

PATIENT
  Sex: Male
  Weight: 22.676 kg

DRUGS (3)
  1. STRATTERA [Suspect]
     Dosage: 28 MG, DAILY (1/D)
     Dates: start: 20040101
  2. STRATTERA [Suspect]
     Dosage: 70 MG, DAILY (1/D)
  3. CLONIDINE [Concomitant]
     Indication: FOETAL ALCOHOL SYNDROME
     Dosage: UNK, EACH EVENING

REACTIONS (5)
  - ACCIDENTAL OVERDOSE [None]
  - DRY MOUTH [None]
  - EPISTAXIS [None]
  - MEDICATION ERROR [None]
  - THIRST [None]
